FAERS Safety Report 19130281 (Version 10)
Quarter: 2021Q4

REPORT INFORMATION
  Report Type: Report from Study
  Country: IT (occurrence: IT)
  Receive Date: 20210413
  Receipt Date: 20211028
  Transmission Date: 20220303
  Serious: Yes (Life-Threatening, Hospitalization)
  Sender: FDA-Public Use
  Company Number: IT-ROCHE-2799470

PATIENT
  Age: 72 Year
  Sex: Male
  Weight: 63 kg

DRUGS (43)
  1. GLOFITAMAB [Suspect]
     Active Substance: GLOFITAMAB
     Indication: Diffuse large B-cell lymphoma
     Dosage: ON 16/MAR/2021 AT 11:05 AM, HE RECEIVED MOST RECENT DOSE OF STUDY DRUG 10 MG PRIOR TO AE AND WAS END
     Route: 042
     Dates: start: 20210309
  2. OBINUTUZUMAB [Suspect]
     Active Substance: OBINUTUZUMAB
     Indication: Diffuse large B-cell lymphoma
     Dosage: ON 03/MAR/2021 AT 11:30 AM, HE RECEIVED MOST RECENT DOSE OF STUDY DRUG 1000 MG PRIOR TO AE + SAE AND
     Route: 042
     Dates: start: 20210303
  3. POLATUZUMAB VEDOTIN [Suspect]
     Active Substance: POLATUZUMAB VEDOTIN
     Indication: Diffuse large B-cell lymphoma
     Dosage: ON 04/MAR/2021 AT 11:00 AM, HE RECEIVED MOST RECENT DOSE 121 MG IN 100 ML OF STUDY DRUG PRIOR TO AE
     Route: 042
     Dates: start: 20210304
  4. BECLOMETHASONE DIPROPIONATE [Concomitant]
     Active Substance: BECLOMETHASONE DIPROPIONATE
     Indication: Bronchospasm
     Dates: start: 20210305, end: 20210305
  5. BECLOMETHASONE DIPROPIONATE [Concomitant]
     Active Substance: BECLOMETHASONE DIPROPIONATE
     Dates: start: 20210310, end: 20210314
  6. ACETAMINOPHEN [Concomitant]
     Active Substance: ACETAMINOPHEN
     Indication: Cytokine release syndrome
     Dates: start: 20210309, end: 20210310
  7. ACETAMINOPHEN [Concomitant]
     Active Substance: ACETAMINOPHEN
     Indication: Pyrexia
     Route: 048
     Dates: start: 20210304, end: 20210304
  8. ACETAMINOPHEN [Concomitant]
     Active Substance: ACETAMINOPHEN
     Route: 048
     Dates: start: 20210303, end: 20210303
  9. ACETAMINOPHEN [Concomitant]
     Active Substance: ACETAMINOPHEN
     Route: 048
     Dates: start: 20210316, end: 20210316
  10. ACETAMINOPHEN [Concomitant]
     Active Substance: ACETAMINOPHEN
     Route: 048
     Dates: start: 20210323, end: 20210323
  11. ACETAMINOPHEN [Concomitant]
     Active Substance: ACETAMINOPHEN
     Route: 048
     Dates: start: 20210309, end: 20210309
  12. ACETAMINOPHEN [Concomitant]
     Active Substance: ACETAMINOPHEN
     Dates: start: 20210327, end: 20210327
  13. LEVOFLOXACIN [Concomitant]
     Active Substance: LEVOFLOXACIN
     Indication: Cytokine release syndrome
     Dates: start: 20210310, end: 20210318
  14. VALCYTE [Concomitant]
     Active Substance: VALGANCICLOVIR HYDROCHLORIDE
     Indication: Cytomegalovirus infection reactivation
     Dates: start: 20210315, end: 20210322
  15. OXYGEN [Concomitant]
     Active Substance: OXYGEN
     Indication: Hypoxia
     Dosage: 4 LT/MIN
     Dates: start: 20210309, end: 20210312
  16. OXYGEN [Concomitant]
     Active Substance: OXYGEN
     Indication: Tumour flare
  17. DEXAMETHASONE [Concomitant]
     Active Substance: DEXAMETHASONE
     Route: 042
     Dates: start: 20210316, end: 20210316
  18. DEXAMETHASONE [Concomitant]
     Active Substance: DEXAMETHASONE
     Route: 042
     Dates: start: 20210323, end: 20210323
  19. DEXAMETHASONE [Concomitant]
     Active Substance: DEXAMETHASONE
     Route: 042
     Dates: start: 20210309, end: 20210309
  20. DEXAMETHASONE [Concomitant]
     Active Substance: DEXAMETHASONE
     Route: 042
     Dates: start: 20210303, end: 20210303
  21. CHLORPHENIRAMINE MALEATE [Concomitant]
     Active Substance: CHLORPHENIRAMINE MALEATE
     Indication: Rash
     Route: 042
     Dates: start: 20210303, end: 20210303
  22. CHLORPHENIRAMINE MALEATE [Concomitant]
     Active Substance: CHLORPHENIRAMINE MALEATE
     Route: 042
     Dates: start: 20210304, end: 20210304
  23. CHLORPHENIRAMINE MALEATE [Concomitant]
     Active Substance: CHLORPHENIRAMINE MALEATE
     Route: 042
     Dates: start: 20210309, end: 20210309
  24. CHLORPHENIRAMINE MALEATE [Concomitant]
     Active Substance: CHLORPHENIRAMINE MALEATE
     Route: 042
     Dates: start: 20210323, end: 20210323
  25. CHLORPHENIRAMINE MALEATE [Concomitant]
     Active Substance: CHLORPHENIRAMINE MALEATE
     Route: 042
     Dates: start: 20210316, end: 20210316
  26. CHLORPHENIRAMINE MALEATE [Concomitant]
     Active Substance: CHLORPHENIRAMINE MALEATE
     Dates: start: 20210329, end: 20210329
  27. CHLORPHENIRAMINE MALEATE [Concomitant]
     Active Substance: CHLORPHENIRAMINE MALEATE
     Dates: start: 20210327, end: 20210327
  28. LANSOPRAZOLE [Concomitant]
     Active Substance: LANSOPRAZOLE
     Dates: start: 202005, end: 20210325
  29. ACYCLOVIR [Concomitant]
     Active Substance: ACYCLOVIR
     Dates: start: 202005, end: 20210331
  30. CHOLECALCIFEROL [Concomitant]
     Active Substance: CHOLECALCIFEROL
     Dates: start: 202005, end: 20210331
  31. BACTRIM [Concomitant]
     Active Substance: SULFAMETHOXAZOLE\TRIMETHOPRIM
     Indication: Antifungal prophylaxis
     Dates: start: 20210303, end: 202106
  32. ALLOPURINOL [Concomitant]
     Active Substance: ALLOPURINOL
     Indication: Hyperuricaemia
     Dates: start: 20210303, end: 20210326
  33. LEVETIRACETAM [Concomitant]
     Active Substance: LEVETIRACETAM
     Dates: start: 20210308, end: 20210331
  34. OXATOMIDE [Concomitant]
     Active Substance: OXATOMIDE
     Indication: Rash
     Dates: start: 20210320, end: 20210320
  35. CETIRIZINE [Concomitant]
     Active Substance: CETIRIZINE HYDROCHLORIDE
     Indication: Rash
     Dates: start: 20210327, end: 20210331
  36. G-CSF (GRANULOCYTE-COLONY STIMULATING FACTOR) (UNK INGREDIENTS) [Concomitant]
     Indication: Prophylaxis
     Dates: start: 20210330, end: 20210401
  37. OMEPRAZOLE [Concomitant]
     Active Substance: OMEPRAZOLE
     Dates: start: 20210326, end: 20210331
  38. CLONIDINE [Concomitant]
     Active Substance: CLONIDINE
     Indication: Hypertension
     Dates: start: 20210405
  39. ENOXAPARIN SODIUM [Concomitant]
     Active Substance: ENOXAPARIN SODIUM
     Dates: start: 20210405, end: 20210405
  40. PANTOPRAZOLE [Concomitant]
     Active Substance: PANTOPRAZOLE
     Dates: start: 20210518
  41. ENOXAPARIN SODIUM [Concomitant]
     Active Substance: ENOXAPARIN SODIUM
     Indication: Thrombosis prophylaxis
     Dates: start: 20210524, end: 20210827
  42. ASCORBIC ACID\FERRIC PYROPHOSPHATE [Concomitant]
     Active Substance: ASCORBIC ACID\FERRIC PYROPHOSPHATE
     Dates: start: 20210626, end: 20210726
  43. LORAZEPAM [Concomitant]
     Active Substance: LORAZEPAM
     Dates: start: 20210626

REACTIONS (1)
  - Jejunal perforation [Recovered/Resolved]

NARRATIVE: CASE EVENT DATE: 20210320
